FAERS Safety Report 24034648 (Version 1)
Quarter: 2024Q3

REPORT INFORMATION
  Report Type: Report from Study
  Country: GB (occurrence: GB)
  Receive Date: 20240701
  Receipt Date: 20240701
  Transmission Date: 20241017
  Serious: No
  Sender: ROCHE
  Company Number: GB-ROCHE-3019952

PATIENT
  Sex: Female

DRUGS (2)
  1. RISDIPLAM [Suspect]
     Active Substance: RISDIPLAM
     Indication: Spinal muscular atrophy
     Route: 065
     Dates: start: 202104
  2. RISDIPLAM [Suspect]
     Active Substance: RISDIPLAM
     Dosage: FREQUENCY TEXT:1
     Route: 065
     Dates: start: 20210413

REACTIONS (2)
  - Product dispensing error [Unknown]
  - Pneumonia [Unknown]
